FAERS Safety Report 10816503 (Version 3)
Quarter: 2015Q2

REPORT INFORMATION
  Report Type: Spontaneous
  Country: US (occurrence: US)
  Receive Date: 20150218
  Receipt Date: 20150424
  Transmission Date: 20150821
  Serious: No
  Sender: FDA-Public Use
  Company Number: US-ASTRAZENECA-2015SE13230

PATIENT
  Age: 1957 Day
  Sex: Male
  Weight: 14.5 kg

DRUGS (2)
  1. PROAIR ALBUTEROL INHALER [Concomitant]
     Indication: UPPER RESPIRATORY TRACT INFECTION
     Route: 055
     Dates: start: 201410
  2. PULMICORT FLEXHALER [Suspect]
     Active Substance: BUDESONIDE
     Indication: UPPER RESPIRATORY TRACT INFECTION
     Dosage: 2 PUFFS, TWICE DAILY
     Route: 055
     Dates: start: 201410

REACTIONS (2)
  - Upper respiratory tract infection [Not Recovered/Not Resolved]
  - Product use issue [Unknown]

NARRATIVE: CASE EVENT DATE: 20150202
